FAERS Safety Report 7295034-6 (Version None)
Quarter: 2011Q1

REPORT INFORMATION
  Report Type: 
  Country: None (occurrence: None)
  Receive Date: 20110216
  Receipt Date: 20110208
  Transmission Date: 20110831
  Serious: Yes (Other)
  Sender: FDA-Public Use
  Company Number: CA-JNJFOC-20110202839

PATIENT
  Sex: Male

DRUGS (2)
  1. REMICADE [Suspect]
     Indication: CROHN'S DISEASE
     Route: 042
  2. ANTIBIOTICS NOS [Suspect]
     Indication: VIRAL INFECTION
     Route: 065

REACTIONS (8)
  - NERVE INJURY [None]
  - DIZZINESS [None]
  - DEAFNESS [None]
  - VIRAL INFECTION [None]
  - PHARYNGITIS STREPTOCOCCAL [None]
  - VOCAL CORD DISORDER [None]
  - TONSILLITIS [None]
  - LARYNGITIS [None]
